FAERS Safety Report 24859898 (Version 3)
Quarter: 2025Q3

REPORT INFORMATION
  Report Type: Report from Study
  Country: US (occurrence: US)
  Receive Date: 20250119
  Receipt Date: 20250803
  Transmission Date: 20251020
  Serious: Yes (Other)
  Sender: ALEXION PHARMACEUTICALS
  Company Number: US-AstraZeneca-CH-00785351A

PATIENT
  Sex: Female

DRUGS (1)
  1. ULTOMIRIS [Suspect]
     Active Substance: RAVULIZUMAB-CWVZ
     Route: 065

REACTIONS (14)
  - Cerebrovascular accident [Unknown]
  - Vision blurred [Unknown]
  - Eyelid ptosis [Unknown]
  - Muscle spasms [Unknown]
  - Pain [Unknown]
  - Gait disturbance [Unknown]
  - Dyspnoea [Unknown]
  - Brain fog [Unknown]
  - Dysphagia [Unknown]
  - Speech disorder [Unknown]
  - Decreased appetite [Unknown]
  - Muscular weakness [Unknown]
  - Strabismus [Unknown]
  - Loss of personal independence in daily activities [Unknown]
